FAERS Safety Report 4789772-4 (Version None)
Quarter: 2005Q3

REPORT INFORMATION
  Report Type: 
  Country: None (occurrence: None)
  Receive Date: 20050914
  Receipt Date: 20041221
  Transmission Date: 20060218
  Serious: Yes (Death)
  Sender: FDA-Public Use
  Company Number: 163-20785-04120563

PATIENT
  Age: 74 Year
  Sex: Male

DRUGS (6)
  1. THALOMID [Suspect]
     Indication: MYELODYSPLASTIC SYNDROME
     Dosage: 50MG INCREASED BY 50MG Q7DAYS TO 200MG, DAILY, ORAL
     Route: 048
     Dates: start: 20040927, end: 20040101
  2. PROCRIT [Concomitant]
  3. VIDAZA [Concomitant]
  4. FOLIC ACID [Concomitant]
  5. ENSURE (ENSURE) [Concomitant]
  6. MULTIVITAMIN [Concomitant]

REACTIONS (13)
  - ABNORMAL SENSATION IN EYE [None]
  - ASTHENIA [None]
  - CONDITION AGGRAVATED [None]
  - DEATH [None]
  - DISEASE PROGRESSION [None]
  - DIZZINESS [None]
  - EPISTAXIS [None]
  - ERYTHROPOIESIS ABNORMAL [None]
  - EYE HAEMORRHAGE [None]
  - FOREIGN BODY SENSATION IN EYES [None]
  - PANCYTOPENIA [None]
  - RASH [None]
  - VISION BLURRED [None]
